FAERS Safety Report 6973848-7 (Version None)
Quarter: 2010Q3

REPORT INFORMATION
  Report Type: 
  Country: None (occurrence: None)
  Receive Date: 20100909
  Receipt Date: 20100831
  Transmission Date: 20110219
  Serious: Yes (Hospitalization)
  Sender: FDA-Public Use
  Company Number: B0585629A

PATIENT
  Age: 23 Year
  Sex: Male

DRUGS (5)
  1. RETROVIR [Suspect]
     Route: 048
     Dates: start: 20081101, end: 20090101
  2. VIREAD [Concomitant]
     Route: 048
     Dates: start: 20081101
  3. ATAZANAVIR [Concomitant]
     Route: 065
     Dates: start: 20081001
  4. RITONAVIR [Concomitant]
     Route: 065
     Dates: start: 20081001
  5. STAVUDINE [Concomitant]
     Route: 065
     Dates: start: 20090101

REACTIONS (2)
  - ANAEMIA [None]
  - DECREASED APPETITE [None]
